FAERS Safety Report 4435238-0 (Version None)
Quarter: 2004Q3

REPORT INFORMATION
  Report Type: 
  Country: None (occurrence: None)
  Receive Date: 20040827
  Receipt Date: 20040817
  Transmission Date: 20050211
  Serious: Yes (Other)
  Sender: FDA-Public Use
  Company Number: GB-GLAXOSMITHKLINE-B0342666A

PATIENT
  Age: 11 Year
  Sex: Male

DRUGS (3)
  1. BECONASE [Suspect]
     Route: 055
  2. VENTOLIN [Suspect]
     Route: 055
  3. PIRITON [Concomitant]

REACTIONS (1)
  - AGGRESSION [None]
